FAERS Safety Report 6767376-1 (Version None)
Quarter: 2010Q2

REPORT INFORMATION
  Report Type: 
  Country: None (occurrence: None)
  Receive Date: 20100614
  Receipt Date: 20100512
  Transmission Date: 20101027
  Serious: No
  Sender: FDA-Public Use
  Company Number: US-BAYER-201015609BCC

PATIENT
  Sex: Male

DRUGS (1)
  1. FINACEA [Suspect]
     Indication: ROSACEA
     Route: 061
     Dates: start: 20100421, end: 20100421

REACTIONS (1)
  - BURNING SENSATION [None]
